FAERS Safety Report 7432848-3 (Version None)
Quarter: 2011Q2

REPORT INFORMATION
  Report Type: 
  Country: None (occurrence: None)
  Receive Date: 20110422
  Receipt Date: 20110412
  Transmission Date: 20111010
  Serious: No
  Sender: FDA-Public Use
  Company Number: US-B.I. PHARMACEUTICALS,INC./RIDGEFIELD-2011-BP-10747BP

PATIENT
  Age: 67 Year
  Sex: Male

DRUGS (4)
  1. PRADAXA [Suspect]
     Indication: ATRIAL FIBRILLATION
     Dosage: 300 MG
     Route: 048
     Dates: start: 20110301
  2. DILTIAZEM [Concomitant]
     Indication: CARDIAC DISORDER
     Route: 048
  3. PROPAFENONE [Concomitant]
     Indication: HEART RATE IRREGULAR
     Route: 048
  4. LISINOPRIL [Concomitant]
     Indication: HYPERTENSION
     Dosage: 10 MG
     Route: 048

REACTIONS (3)
  - DYSGEUSIA [None]
  - ABDOMINAL DISCOMFORT [None]
  - HYPOAESTHESIA [None]
